FAERS Safety Report 5967467-9 (Version None)
Quarter: 2008Q4

REPORT INFORMATION
  Report Type: 
  Country: None (occurrence: None)
  Receive Date: 20081125
  Receipt Date: 20081114
  Transmission Date: 20090506
  Serious: Yes (Other)
  Sender: FDA-Public Use
  Company Number: GB-PFIZER INC-2008096748

PATIENT
  Age: 10 Year

DRUGS (6)
  1. CYCLOPHOSPHAMIDE [Suspect]
     Indication: THALASSAEMIA
     Route: 042
  2. METHOTREXATE SODIUM [Suspect]
     Indication: THALASSAEMIA
  3. METHOTREXATE SODIUM [Suspect]
     Indication: PROPHYLAXIS AGAINST GRAFT VERSUS HOST DISEASE
  4. CYCLOSPROINE [Suspect]
     Indication: THALASSAEMIA
  5. TREOSULFAN [Suspect]
     Indication: THALASSAEMIA
     Dosage: TEXT:12 G/M2-FREQ:ON DAYS -6, -5 AND -4
  6. ATGAM [Concomitant]

REACTIONS (1)
  - MUCOSAL INFLAMMATION [None]
